FAERS Safety Report 9416143 (Version 1)
Quarter: 2013Q3

REPORT INFORMATION
  Report Type: Spontaneous
  Country: None (occurrence: None)
  Receive Date: 20130717
  Receipt Date: 20130717
  Transmission Date: 20140515
  Serious: Yes (Other)
  Sender: FDA-Public Use
  Company Number: US-ALKEM-000106

PATIENT
  Age: 18 Year
  Sex: Female

DRUGS (1)
  1. MYCOPHENOLATE MOFETIL [Suspect]
     Indication: GOODPASTURE^S SYNDROME

REACTIONS (4)
  - Treatment noncompliance [None]
  - Goodpasture^s syndrome [None]
  - Disease recurrence [None]
  - Off label use [None]
